FAERS Safety Report 5984377-1 (Version None)
Quarter: 2008Q4

REPORT INFORMATION
  Report Type: 
  Country: None (occurrence: None)
  Receive Date: 20081208
  Receipt Date: 20081204
  Transmission Date: 20090506
  Serious: Yes (Death, Other)
  Sender: FDA-Public Use
  Company Number: PHHY2008IE30781

PATIENT
  Sex: Male

DRUGS (4)
  1. CLOZARIL [Suspect]
     Indication: SCHIZOPHRENIA
     Dosage: UNK
     Dates: start: 19960614, end: 20070101
  2. CLOZARIL [Suspect]
     Dosage: UNK
     Dates: start: 20070820
  3. AMIODARONE HCL [Concomitant]
     Indication: CARDIAC DISORDER
  4. DIURETICS [Concomitant]

REACTIONS (5)
  - CARDIAC ARREST [None]
  - DEATH [None]
  - MYOCARDIAL INFARCTION [None]
  - OBESITY [None]
  - RESPIRATORY ARREST [None]
